FAERS Safety Report 4992741-2 (Version None)
Quarter: 2006Q1

REPORT INFORMATION
  Report Type: 
  Country: None (occurrence: None)
  Receive Date: 20060313
  Receipt Date: 20051122
  Transmission Date: 20060701
  Serious: No
  Sender: FDA-Public Use
  Company Number: 2005-BP-10946BP

PATIENT
  Age: 63 Year
  Sex: Male

DRUGS (2)
  1. SPIRIVA [Suspect]
     Dosage: (18 MCG), IH
     Route: 055
  2. SPIRIVA [Suspect]

REACTIONS (1)
  - MALAISE [None]
